FAERS Safety Report 9405471 (Version 3)
Quarter: 2013Q4

REPORT INFORMATION
  Report Type: Spontaneous
  Country: JP (occurrence: JP)
  Receive Date: 20130717
  Receipt Date: 20131106
  Transmission Date: 20140711
  Serious: Yes (Hospitalization)
  Sender: FDA-Public Use
  Company Number: JP-BRISTOL-MYERS SQUIBB COMPANY-19085331

PATIENT
  Age: 66 Year
  Sex: Male
  Weight: 43 kg

DRUGS (2)
  1. ORENCIA FOR INJ 250 MG/VIAL [Suspect]
     Indication: RHEUMATOID ARTHRITIS
     Dosage: 500 MG/MONTH
     Route: 042
     Dates: end: 20130610
  2. PREDONINE [Concomitant]
     Indication: RHEUMATIC DISORDER
     Route: 048

REACTIONS (1)
  - Central nervous system lesion [Recovering/Resolving]
